FAERS Safety Report 16737250 (Version 1)
Quarter: 2019Q3

REPORT INFORMATION
  Report Type: Spontaneous
  Country: GB (occurrence: GB)
  Receive Date: 20190823
  Receipt Date: 20190823
  Transmission Date: 20191005
  Serious: Yes (Other)
  Sender: FDA-Public Use
  Company Number: GB-TEVA-2019-GB-1095697

PATIENT
  Age: 24 Year
  Sex: Female
  Weight: 75 kg

DRUGS (5)
  1. LOTRIDERM [Concomitant]
     Active Substance: BETAMETHASONE DIPROPIONATE\CLOTRIMAZOLE
     Dosage: 2 DOSAGE FORMS
     Dates: start: 20190503, end: 20190517
  2. FEMODENE [Concomitant]
     Active Substance: ETHINYL ESTRADIOL\GESTODENE
     Dosage: FOR 21 DAYS, 1 DOSAGE FORMS
     Dates: start: 20190503
  3. MOMETASONE [Concomitant]
     Active Substance: MOMETASONE
     Dosage: 1 DOSAGE FORMS
     Dates: start: 20190523, end: 20190620
  4. ZERODERMA EMOLLIENT MEDICINAL BATH [Concomitant]
     Dosage: USE PLENTIFULLY.
     Dates: start: 20190523, end: 20190620
  5. NAPROXEN. [Suspect]
     Active Substance: NAPROXEN
     Dosage: 500 MILLIGRAM
     Dates: start: 20190515

REACTIONS (2)
  - Swelling face [Recovered/Resolved]
  - Rash [Unknown]
